FAERS Safety Report 8080911-9 (Version None)
Quarter: 2012Q1

REPORT INFORMATION
  Report Type: 
  Country: None (occurrence: None)
  Receive Date: 20120130
  Receipt Date: 20120120
  Transmission Date: 20120608
  Serious: Yes (Hospitalization)
  Sender: FDA-Public Use
  Company Number: US-JNJFOC-20120111792

PATIENT
  Sex: Male

DRUGS (14)
  1. DEXAMETHASONE [Concomitant]
     Indication: ANTIEMETIC SUPPORTIVE CARE
     Route: 065
  2. CEFAZOLIN [Concomitant]
     Indication: ANTIBIOTIC PROPHYLAXIS
     Route: 065
  3. ONDANSETRON [Concomitant]
     Indication: ANTIEMETIC SUPPORTIVE CARE
     Route: 065
  4. LIDOCAINE [Concomitant]
     Indication: ANAESTHESIA
     Route: 065
  5. CISPLATIN [Suspect]
     Indication: OESOPHAGEAL CANCER METASTATIC
     Route: 013
  6. DIPHENHYDRAMINE HCL [Concomitant]
     Indication: ANTIEMETIC SUPPORTIVE CARE
     Route: 065
  7. METRONIDAZOLE [Concomitant]
     Indication: ANTIBIOTIC PROPHYLAXIS
     Route: 065
  8. MIDAZOLAM [Concomitant]
     Indication: ANAESTHESIA
     Route: 042
  9. LIDOCAINE [Concomitant]
     Route: 013
  10. ETHIODIZED OIL [Suspect]
     Indication: OESOPHAGEAL CANCER METASTATIC
     Route: 013
  11. POLYVINYL ALCOHOL [Suspect]
     Indication: OESOPHAGEAL CANCER METASTATIC
     Route: 013
  12. DOXORUBICIN HCL [Suspect]
     Indication: OESOPHAGEAL CANCER METASTATIC
     Route: 013
  13. MITOMYCIN [Suspect]
     Indication: OESOPHAGEAL CANCER METASTATIC
     Route: 013
  14. FENTANYL [Concomitant]
     Indication: ANAESTHESIA
     Route: 042

REACTIONS (4)
  - INCORRECT ROUTE OF DRUG ADMINISTRATION [None]
  - HYPOVOLAEMIA [None]
  - DEEP VEIN THROMBOSIS [None]
  - OFF LABEL USE [None]
